FAERS Safety Report 9638533 (Version 2)
Quarter: 2013Q4

REPORT INFORMATION
  Report Type: Report from Study
  Country: GB (occurrence: GB)
  Receive Date: 20131022
  Receipt Date: 20131212
  Transmission Date: 20140711
  Serious: Yes (Death, Life-Threatening, Hospitalization)
  Sender: FDA-Public Use
  Company Number: GB-MERCK-1310GBR009351

PATIENT
  Age: 75 Year
  Sex: Male
  Weight: 70.7 kg

DRUGS (6)
  1. VORINOSTAT [Suspect]
     Dosage: 300 MG, BID, CYCLE 1
     Route: 048
     Dates: start: 20130930, end: 20131009
  2. AZACITIDINE [Suspect]
     Dosage: 138 MG, QD, CYCLE 1
     Route: 058
     Dates: start: 20130930, end: 20131008
  3. GRANULOCYTE COLONY STIMULATING FACTOR (UNSPECIFIED) [Concomitant]
     Indication: NEUTROPENIA
     Dosage: UNK
     Dates: start: 20131008, end: 20131014
  4. PLATELET CONCENTRATE [Concomitant]
     Indication: THROMBOCYTOPENIA
     Dosage: UNK
     Dates: start: 20131011
  5. LAXIDO [Concomitant]
     Indication: CONSTIPATION
     Dosage: UNK
     Dates: start: 20131004, end: 20131014
  6. TAMSULOSIN HYDROCHLORIDE [Concomitant]
     Indication: DYSURIA

REACTIONS (2)
  - Back pain [Fatal]
  - Abdominal pain [Fatal]
